FAERS Safety Report 13001207 (Version 1)
Quarter: 2016Q4

REPORT INFORMATION
  Report Type: Report from Study
  Country: US (occurrence: US)
  Receive Date: 20161206
  Receipt Date: 20161206
  Transmission Date: 20170207
  Serious: Yes (Hospitalization)
  Sender: FDA-Public Use
  Company Number: US-MALLINCKRODT-T201604116

PATIENT
  Age: 44 Year
  Sex: Female
  Weight: 66 kg

DRUGS (21)
  1. VITAMIN B12 [Concomitant]
     Active Substance: CYANOCOBALAMIN
     Indication: SUPPLEMENTATION THERAPY
     Dosage: 100 UG QD
     Route: 065
     Dates: start: 2011
  2. VITAMIN D3 [Concomitant]
     Active Substance: CHOLECALCIFEROL
     Indication: SUPPLEMENTATION THERAPY
     Dosage: 5000 U ONCE DAILY
     Route: 065
     Dates: start: 20120924
  3. COQ10 [Concomitant]
     Active Substance: UBIDECARENONE
     Indication: SUPPLEMENTATION THERAPY
     Dosage: 200 MG ONCE DAILY
     Route: 065
     Dates: start: 20140210
  4. CYMBALTA [Concomitant]
     Active Substance: DULOXETINE HYDROCHLORIDE
     Indication: MOOD ALTERED
  5. NUVIGIL [Concomitant]
     Active Substance: ARMODAFINIL
     Indication: MULTIPLE SCLEROSIS
     Dosage: 250 MG ONCE DAILY
     Route: 065
     Dates: start: 20120926
  6. REPOSITORY CORTICOTROPIN INJECTION [Suspect]
     Active Substance: CORTICOTROPIN
     Dosage: 1.0 ML ONCE DAILY FOR 5 DAYS
     Route: 058
     Dates: start: 20160212, end: 20160216
  7. CENTRUM SILVER [Concomitant]
     Active Substance: MINERALS\VITAMINS
     Indication: SUPPLEMENTATION THERAPY
     Dosage: 1 PILL ONCE DAILY
     Route: 065
     Dates: start: 20140703
  8. FOLIC ACID. [Concomitant]
     Active Substance: FOLIC ACID
     Indication: SUPPLEMENTATION THERAPY
     Dosage: .8 MG ONCE DAILY
     Route: 065
     Dates: start: 2011
  9. ADDERALL XR [Concomitant]
     Active Substance: AMPHETAMINE ASPARTATE\AMPHETAMINE SULFATE\DEXTROAMPHETAMINE SACCHARATE\DEXTROAMPHETAMINE SULFATE
     Indication: MULTIPLE SCLEROSIS
     Dosage: 10 MG ONCE DAILY
     Route: 065
     Dates: start: 20150429
  10. REPOSITORY CORTICOTROPIN INJECTION [Suspect]
     Active Substance: CORTICOTROPIN
     Indication: MULTIPLE SCLEROSIS
     Dosage: 1.0 ML ONCE DAILY FOR 5 DAYS
     Route: 058
     Dates: start: 20160127, end: 20160131
  11. SYNTHROID [Concomitant]
     Active Substance: LEVOTHYROXINE SODIUM
     Indication: HYPOTHYROIDISM
     Dosage: 88 UG ONCE DAILY
     Route: 065
     Dates: start: 20130613
  12. CYANOCOBALAMIN. [Concomitant]
     Active Substance: CYANOCOBALAMIN
     Indication: MULTIPLE SCLEROSIS
     Dosage: 1000 UG/ML WEEKLY
     Route: 050
     Dates: start: 20150918
  13. ACYCLOVIR. [Concomitant]
     Active Substance: ACYCLOVIR
     Indication: HERPES SIMPLEX
     Dosage: 800 MG TID
     Route: 065
     Dates: start: 201506
  14. CLONAZEPAM. [Concomitant]
     Active Substance: CLONAZEPAM
     Indication: MULTIPLE SCLEROSIS
     Dosage: .5 MG TWICE DAILY
     Route: 065
     Dates: start: 20140604
  15. LYRICA [Concomitant]
     Active Substance: PREGABALIN
     Indication: MULTIPLE SCLEROSIS
     Dosage: 50 MG TWICE DAILY
     Route: 065
     Dates: start: 20140210
  16. GILENIA [Concomitant]
     Indication: MULTIPLE SCLEROSIS
     Dosage: .5MG ONCE DAILY
     Route: 065
     Dates: start: 20140403, end: 20160217
  17. CYMBALTA [Concomitant]
     Active Substance: DULOXETINE HYDROCHLORIDE
     Indication: PAIN
     Dosage: 60MG ONCE DAILY
     Route: 065
     Dates: start: 20111108
  18. REPOSITORY CORTICOTROPIN INJECTION [Suspect]
     Active Substance: CORTICOTROPIN
     Dosage: 1.0 ML ONCE DAILY FOR 5 DAYS
     Route: 058
     Dates: start: 20160204, end: 20160208
  19. XANAX [Concomitant]
     Active Substance: ALPRAZOLAM
     Indication: HORMONE LEVEL ABNORMAL
     Dosage: .5MG PRN
     Route: 065
     Dates: start: 20131111
  20. ZOLOFT [Concomitant]
     Active Substance: SERTRALINE HYDROCHLORIDE
     Indication: HORMONE LEVEL ABNORMAL
     Dosage: 25 MG ONCE DAILY
     Route: 065
     Dates: start: 20131111
  21. LIDODERM [Concomitant]
     Active Substance: LIDOCAINE
     Indication: MULTIPLE SCLEROSIS
     Dosage: 5% PRN
     Route: 062
     Dates: start: 20131111

REACTIONS (1)
  - Asthenia [Recovered/Resolved]

NARRATIVE: CASE EVENT DATE: 20160222
